FAERS Safety Report 5255430-5 (Version None)
Quarter: 2007Q1

REPORT INFORMATION
  Report Type: 
  Country: None (occurrence: None)
  Receive Date: 20070305
  Receipt Date: 20070220
  Transmission Date: 20070707
  Serious: Yes (Other)
  Sender: FDA-Public Use
  Company Number: PHFR2007GB00876

PATIENT
  Sex: Male

DRUGS (3)
  1. GLEEVEC [Suspect]
     Indication: CHRONIC MYELOID LEUKAEMIA
     Dosage: 600 MG, QD
     Route: 065
     Dates: start: 20070201
  2. GLEEVEC [Suspect]
     Dosage: 800MG
     Route: 065
     Dates: start: 20070217
  3. GLEEVEC [Suspect]
     Dosage: 400 MG, QD
     Route: 065
     Dates: start: 20070220

REACTIONS (2)
  - ERYTHEMA NODOSUM [None]
  - NO THERAPEUTIC RESPONSE [None]
